FAERS Safety Report 4594683-3 (Version None)
Quarter: 2005Q1

REPORT INFORMATION
  Report Type: 
  Country: None (occurrence: None)
  Receive Date: 20050301
  Receipt Date: 20041217
  Transmission Date: 20050727
  Serious: No
  Sender: FDA-Public Use
  Company Number: US-BRISTOL-MYERS SQUIBB COMPANY-12799755

PATIENT
  Age: 59 Year
  Sex: Female
  Weight: 92 kg

DRUGS (5)
  1. ERBITUX [Suspect]
     Indication: COLON CANCER METASTATIC
     Dosage: FOLLOWED BY WEEKLY DOSES OF 492 MG.
     Route: 042
     Dates: start: 20041201, end: 20041201
  2. ATROPINE [Concomitant]
     Indication: PREMEDICATION
     Dates: start: 20041201, end: 20041201
  3. BENADRYL [Concomitant]
     Indication: PREMEDICATION
     Dates: start: 20041201, end: 20041201
  4. KYTRIL [Concomitant]
     Indication: PREMEDICATION
     Dates: start: 20041201, end: 20041201
  5. IRINOTECAN HCL [Concomitant]

REACTIONS (1)
  - DERMATITIS ACNEIFORM [None]
